FAERS Safety Report 22923569 (Version 14)
Quarter: 2024Q4

REPORT INFORMATION
  Report Type: Spontaneous
  Country: US (occurrence: US)
  Receive Date: 20230908
  Receipt Date: 20241017
  Transmission Date: 20250115
  Serious: Yes (Other)
  Sender: NOVARTIS
  Company Number: US-002147023-NVSC2023US194371

PATIENT
  Sex: Female

DRUGS (1)
  1. KESIMPTA [Suspect]
     Active Substance: OFATUMUMAB
     Indication: Multiple sclerosis
     Dosage: 20 MG, QMO
     Route: 058
     Dates: start: 20230810

REACTIONS (8)
  - Multiple sclerosis [Unknown]
  - Multiple sclerosis relapse [Unknown]
  - Neoplasm malignant [Unknown]
  - Injection site bruising [Unknown]
  - Influenza like illness [Unknown]
  - Headache [Unknown]
  - Pain in extremity [Unknown]
  - Pain [Unknown]
